FAERS Safety Report 26199370 (Version 1)
Quarter: 2025Q4

REPORT INFORMATION
  Report Type: Spontaneous
  Country: EU (occurrence: EU)
  Receive Date: 20251225
  Receipt Date: 20251225
  Transmission Date: 20260118
  Serious: Yes (Hospitalization)
  Sender: NOVARTIS
  Company Number: None

PATIENT
  Age: 75 Year
  Sex: Female

DRUGS (8)
  1. TEGRETOL [Suspect]
     Active Substance: CARBAMAZEPINE
     Indication: Trigeminal neuralgia
     Dosage: UNK Q12H (50 TABLETS, 1 CP CADA 12 HORAS)
     Route: 048
     Dates: start: 20250912, end: 20250916
  2. VALSARTAN [Concomitant]
     Active Substance: VALSARTAN
     Indication: Hypertension
     Dosage: UNK, Q24H (28 TABLETS, 1 CP CADA 12 HORAS)
     Route: 048
     Dates: start: 20250829
  3. PROLIA [Concomitant]
     Active Substance: DENOSUMAB
     Indication: Osteoporosis
     Dosage: UNK (1 INYECTABLE CADA 180 DIAS)
     Route: 058
     Dates: start: 20220530
  4. PENTOXIFYLLINE [Concomitant]
     Active Substance: PENTOXIFYLLINE
     Indication: Peripheral venous disease
     Dosage: UNK, Q12H (EXTENDED-RELEASE TABLETS, 60 TABLETS, 1 CP CADA 12 HORAS)
     Route: 048
     Dates: start: 20201105
  5. FAMOTIDINA CINFA [Concomitant]
     Indication: Prophylaxis
     Dosage: UNK, Q24H (28 TABLETS, 1 CP CADA 12 HORAS)
     Route: 048
     Dates: start: 20231023
  6. BISOPROLOL FUMARATE [Concomitant]
     Active Substance: BISOPROLOL FUMARATE
     Indication: Hypertension
     Dosage: UNK, Q24H (1 CP CADA 24 HORAS, 28 TABLETS (BLISTERPVC/PCTFE AND AL)
     Route: 048
     Dates: start: 20231212
  7. ATORVASTATIN CALCIUM\EZETIMIBE [Concomitant]
     Active Substance: ATORVASTATIN CALCIUM\EZETIMIBE
     Indication: Dyslipidaemia
     Dosage: UNK, Q24H (30 TABLETS,1 CP CADA 24 HORAS)
     Route: 048
     Dates: start: 20240226
  8. ENOXAPARIN SODIUM [Concomitant]
     Active Substance: ENOXAPARIN SODIUM
     Indication: Deep vein thrombosis
     Dosage: UNK, Q12H (8.000 UI (80 MG)/0,8 ML SOLUCION INYECTABLE, 30 JERINGAS PRECARGADAS DE 0,8 ML, 1 CP CADA
     Route: 058
     Dates: start: 20250901

REACTIONS (2)
  - Hypertransaminasaemia [Recovered/Resolved]
  - Hepatic encephalopathy [Recovered/Resolved]

NARRATIVE: CASE EVENT DATE: 20250915
